FAERS Safety Report 6528816-6 (Version None)
Quarter: 2009Q4

REPORT INFORMATION
  Report Type: 
  Country: None (occurrence: None)
  Receive Date: 20091223
  Receipt Date: 20091213
  Transmission Date: 20100525
  Serious: Yes (Hospitalization)
  Sender: FDA-Public Use
  Company Number: A-US2009-23935

PATIENT
  Age: 64 Year
  Sex: Female

DRUGS (8)
  1. VENTAVIS [Suspect]
     Indication: PULMONARY ARTERIAL HYPERTENSION
     Dosage: 5 UG, 6XDAY, RESPIRATORY
     Route: 055
     Dates: start: 20080725, end: 20091009
  2. MARCUMAR [Concomitant]
  3. OXYGEN (OXYGEN) [Concomitant]
  4. SILDENAFIL [Concomitant]
  5. CITALOPRAM (CITALOPRAM HYDROCHLORIDE) [Concomitant]
  6. PIPERACILLIN W/TAZOBACTAM (TAZOBACTAM, PIPERACILLIN) [Concomitant]
  7. CIPROFLOXACIN [Concomitant]
  8. FLUCONAZOLE [Concomitant]

REACTIONS (9)
  - BRONCHITIS [None]
  - BRONCHOPULMONARY ASPERGILLOSIS [None]
  - CHRONIC OBSTRUCTIVE PULMONARY DISEASE [None]
  - CONDITION AGGRAVATED [None]
  - DIARRHOEA [None]
  - HAEMOPTYSIS [None]
  - LUNG INFECTION PSEUDOMONAL [None]
  - MAJOR DEPRESSION [None]
  - STAPHYLOCOCCAL INFECTION [None]
